FAERS Safety Report 15042574 (Version 1)
Quarter: 2018Q2

REPORT INFORMATION
  Report Type: Report from Study
  Country: US (occurrence: US)
  Receive Date: 20180621
  Receipt Date: 20180621
  Transmission Date: 20180711
  Serious: Yes (Other)
  Sender: FDA-Public Use
  Company Number: US-B.I. PHARMACEUTICALS,INC./RIDGEFIELD-2018-BI-031299

PATIENT

DRUGS (2)
  1. VIRAMUNE [Suspect]
     Active Substance: NEVIRAPINE
     Indication: ANTIVIRAL PROPHYLAXIS
     Dosage: DOSE: 3 DOSES DURING THE FIRST WEEK OF LIFE
     Route: 065
  2. ZIDOVUDINE. [Suspect]
     Active Substance: ZIDOVUDINE
     Indication: ANTIVIRAL PROPHYLAXIS
     Route: 065

REACTIONS (4)
  - Acquired gene mutation [Unknown]
  - Sepsis [Unknown]
  - Ear infection [Unknown]
  - Human immunodeficiency virus transmission [Unknown]
